FAERS Safety Report 25794511 (Version 1)
Quarter: 2025Q3

REPORT INFORMATION
  Report Type: Spontaneous
  Country: EU (occurrence: EU)
  Receive Date: 20250912
  Receipt Date: 20250912
  Transmission Date: 20251021
  Serious: Yes (Other)
  Sender: NOVITIUM PHARMA
  Company Number: EU-NOVITIUMPHARMA-2025RONVP02285

PATIENT
  Age: 69 Year
  Sex: Male

DRUGS (9)
  1. DEXAMETHASONE [Suspect]
     Active Substance: DEXAMETHASONE
     Indication: Diffuse large B-cell lymphoma
  2. ETOPOSIDE [Concomitant]
     Active Substance: ETOPOSIDE
  3. PREDNISONE [Concomitant]
     Active Substance: PREDNISONE
  4. VINCRISTINE [Concomitant]
     Active Substance: VINCRISTINE
  5. CYCLOPHOSPHAMIDE [Concomitant]
     Active Substance: CYCLOPHOSPHAMIDE
  6. DOXORUBICIN [Concomitant]
     Active Substance: DOXORUBICIN
  7. GEMCITABINE [Concomitant]
     Active Substance: GEMCITABINE
  8. CISPLATIN [Concomitant]
     Active Substance: CISPLATIN
  9. LENALIDOMIDE [Concomitant]
     Active Substance: LENALIDOMIDE

REACTIONS (2)
  - Sepsis [Unknown]
  - Drug ineffective [Unknown]
